FAERS Safety Report 5032012-1 (Version None)
Quarter: 2006Q2

REPORT INFORMATION
  Report Type: 
  Country: None (occurrence: None)
  Receive Date: 20060614
  Receipt Date: 20060531
  Transmission Date: 20061013
  Serious: Yes (Hospitalization)
  Sender: FDA-Public Use
  Company Number: THYM-10929

PATIENT
  Age: 65 Year
  Sex: Male
  Weight: 80 kg

DRUGS (6)
  1. THYMOGLOBULIN [Suspect]
     Indication: RENAL TRANSPLANT
     Dosage: 75 MG QD IV
     Route: 042
     Dates: start: 20060314, end: 20060314
  2. THYMOGLOBULIN [Suspect]
  3. THYMOGLOBULIN [Suspect]
  4. HYDROCORTISONE HEMISUCCINATE [Concomitant]
  5. POLARAMINE [Concomitant]
  6. SOLUMEDRONE [Concomitant]

REACTIONS (10)
  - CHILLS [None]
  - CYTOKINE RELEASE SYNDROME [None]
  - DEVICE FAILURE [None]
  - FISTULA [None]
  - INCORRECT DRUG ADMINISTRATION RATE [None]
  - INFUSION RELATED REACTION [None]
  - MYALGIA [None]
  - OXYGEN SATURATION DECREASED [None]
  - PULMONARY OEDEMA [None]
  - PYREXIA [None]
